FAERS Safety Report 10185354 (Version 1)
Quarter: 2014Q2

REPORT INFORMATION
  Report Type: Spontaneous
  Country: US (occurrence: None)
  Receive Date: 20140520
  Receipt Date: 20140520
  Transmission Date: 20141212
  Serious: No
  Sender: FDA-Public Use
  Company Number: None

PATIENT
  Age: 18 Month
  Sex: Male
  Weight: 12.25 kg

DRUGS (1)
  1. VALPROIC ACID [Suspect]
     Route: 048

REACTIONS (2)
  - Drug dispensing error [None]
  - Product packaging confusion [None]
